FAERS Safety Report 10201059 (Version 1)
Quarter: 2014Q2

REPORT INFORMATION
  Report Type: Spontaneous
  Country: IL (occurrence: IL)
  Receive Date: 20140528
  Receipt Date: 20140528
  Transmission Date: 20141212
  Serious: Yes (Hospitalization)
  Sender: FDA-Public Use
  Company Number: IL-ASTRAZENECA-2014SE35774

PATIENT
  Sex: Male

DRUGS (8)
  1. BRILINTA [Suspect]
     Indication: ACUTE CORONARY SYNDROME
     Route: 048
  2. BRILINTA [Suspect]
     Indication: PERCUTANEOUS CORONARY INTERVENTION
     Route: 048
  3. CARTIA [Concomitant]
  4. CONTROLOC [Concomitant]
     Dosage: 40
  5. LITHIUM [Concomitant]
  6. ENALADEX [Concomitant]
  7. FOLIC ACID [Concomitant]
  8. VITAMIN D [Concomitant]

REACTIONS (2)
  - Constipation [Unknown]
  - Myalgia [Unknown]
